FAERS Safety Report 24823999 (Version 2)
Quarter: 2025Q1

REPORT INFORMATION
  Report Type: Spontaneous
  Country: PT (occurrence: PT)
  Receive Date: 20250109
  Receipt Date: 20250124
  Transmission Date: 20250409
  Serious: Yes (Life-Threatening, Hospitalization)
  Sender: TEVA
  Company Number: PT-TEVA-VS-3282522

PATIENT
  Age: 54 Year
  Sex: Male

DRUGS (1)
  1. METHOTREXATE [Suspect]
     Active Substance: METHOTREXATE
     Indication: Psoriasis
     Dosage: PRESCRIBED: 12/12H ONCE PER WEEK; HOWEVER, HE TOOK THE DOSE DAILY INSTEAD OF WEEKLY DUE TO MISUND...
     Route: 065

REACTIONS (9)
  - Inappropriate schedule of product administration [Unknown]
  - Pancytopenia [Recovering/Resolving]
  - Respiratory failure [Recovering/Resolving]
  - Renal failure [Recovering/Resolving]
  - Neutropenia [Recovering/Resolving]
  - Cardiac failure [Recovering/Resolving]
  - Product communication issue [Unknown]
  - Pneumonitis [Recovering/Resolving]
  - Septic shock [Recovering/Resolving]
